FAERS Safety Report 24126671 (Version 1)
Quarter: 2024Q3

REPORT INFORMATION
  Report Type: Spontaneous
  Country: NL (occurrence: NL)
  Receive Date: 20240723
  Receipt Date: 20240723
  Transmission Date: 20241017
  Serious: Yes (Hospitalization)
  Sender: MYLAN
  Company Number: None

PATIENT
  Age: 85 Year
  Sex: Female

DRUGS (7)
  1. FUROSEMIDE [Suspect]
     Active Substance: FUROSEMIDE
     Indication: Left ventricular dysfunction
     Dosage: 1 DOSAGE FORM, QD (1DD)
     Route: 065
     Dates: start: 20240328
  2. FUROSEMIDE [Suspect]
     Active Substance: FUROSEMIDE
     Indication: Cardiac failure
  3. PERINDOPRIL [Suspect]
     Active Substance: PERINDOPRIL
     Indication: Left ventricular dysfunction
     Dosage: 1 DOSAGE FORM, QD (1DD)
     Route: 065
     Dates: start: 20240328
  4. PERINDOPRIL [Suspect]
     Active Substance: PERINDOPRIL
     Indication: Cardiac failure
  5. METOPROLOL [Suspect]
     Active Substance: METOPROLOL
     Indication: Left ventricular dysfunction
     Dosage: 1 DOSAGE FORM, QD (1DD)
     Route: 065
     Dates: start: 20240328
  6. METOPROLOL [Suspect]
     Active Substance: METOPROLOL
     Indication: Cardiac failure
  7. APIXABAN [Concomitant]
     Active Substance: APIXABAN
     Dosage: UNK (TABLET, 2.5 MG (MILLIGRAM))
     Route: 065

REACTIONS (3)
  - Fall [Unknown]
  - Soft tissue injury [Unknown]
  - Orthostatic hypotension [Unknown]
